FAERS Safety Report 10430670 (Version 2)
Quarter: 2016Q2

REPORT INFORMATION
  Report Type: Spontaneous
  Country: CH (occurrence: CH)
  Receive Date: 20140904
  Receipt Date: 20160406
  Transmission Date: 20160815
  Serious: Yes (Hospitalization, Other)
  Sender: FDA-Public Use
  Company Number: CH-BRISTOL-MYERS SQUIBB COMPANY-21352828

PATIENT
  Age: 39 Year
  Sex: Female

DRUGS (1)
  1. ABILIFY [Suspect]
     Active Substance: ARIPIPRAZOLE
     Indication: PRODUCT USED FOR UNKNOWN INDICATION
     Dosage: 1120 MG, QD
     Route: 048

REACTIONS (6)
  - Hyponatraemia [Unknown]
  - Suicide attempt [Recovered/Resolved]
  - Depressed level of consciousness [Unknown]
  - Intentional overdose [Recovered/Resolved]
  - Vomiting [Unknown]
  - Anal incontinence [Unknown]

NARRATIVE: CASE EVENT DATE: 20131226
